FAERS Safety Report 9190628 (Version 1)
Quarter: 2013Q1

REPORT INFORMATION
  Report Type: Spontaneous
  Country: US (occurrence: None)
  Receive Date: 20120703
  Receipt Date: 20120703
  Transmission Date: 20140127
  Serious: Yes (Other)
  Sender: FDA-Public Use
  Company Number: PHEH2012US007669

PATIENT
  Age: 59 Year
  Sex: Female

DRUGS (8)
  1. GILENYA (FTY)CAPSULE,0.5MG [Suspect]
     Indication: MULTIPLE SCLEROSIS
     Route: 048
  2. DETROL (TOLTERODINE L-TARTRATE) [Concomitant]
  3. VENLAFAXINE HYDROCHLORIDE (VENLAFAXINE HYDROCHLORIDE) [Concomitant]
  4. VITAMIN D3 (COLECALCIFEROL) [Concomitant]
  5. ALENDRONATE SODIUM (ALDENDRONATE SODIUM) [Concomitant]
  6. CRESTOR (ROSUVASTATIN CALCIUM) [Concomitant]
  7. TRIAMTERENE AND HYDROCHLOROTHIAZID (HYDROCHLOROTHIAZIDE. TRIAMTERENE) [Concomitant]
  8. PROVIGIL (MODAFINIL) [Concomitant]

REACTIONS (3)
  - Depression [None]
  - Depressed mood [None]
  - Decreased interest [None]
